FAERS Safety Report 20680056 (Version 1)
Quarter: 2022Q2

REPORT INFORMATION
  Report Type: Spontaneous
  Country: US (occurrence: None)
  Receive Date: 20220405
  Receipt Date: 20220405
  Transmission Date: 20220721
  Serious: Yes (Other)
  Sender: FDA-Public Use
  Company Number: None

PATIENT
  Age: 66 Year
  Sex: Female
  Weight: 75.7 kg

DRUGS (1)
  1. RUXIENCE [Suspect]
     Active Substance: RITUXIMAB-PVVR
     Indication: Central nervous system lymphoma
     Dosage: FREQUENCY : WEEKLY;?
     Route: 042
     Dates: start: 20220401

REACTIONS (4)
  - Feeling cold [None]
  - Pruritus [None]
  - Infusion related reaction [None]
  - Pain [None]

NARRATIVE: CASE EVENT DATE: 20220401
